FAERS Safety Report 6057261-5 (Version None)
Quarter: 2009Q1

REPORT INFORMATION
  Report Type: 
  Country: None (occurrence: None)
  Receive Date: 20090129
  Receipt Date: 20080617
  Transmission Date: 20090719
  Serious: No
  Sender: FDA-Public Use
  Company Number: A0733405A

PATIENT
  Age: 48 Year
  Sex: Male

DRUGS (2)
  1. WELLBUTRIN [Suspect]
     Indication: DEPRESSION
     Route: 048
     Dates: start: 19990101
  2. UNKNOWN MEDICATION [Concomitant]

REACTIONS (3)
  - PERFORMANCE STATUS DECREASED [None]
  - TREMOR [None]
  - URTICARIA [None]
